FAERS Safety Report 18218678 (Version 7)
Quarter: 2020Q4

REPORT INFORMATION
  Report Type: Spontaneous
  Country: GB (occurrence: GB)
  Receive Date: 20200901
  Receipt Date: 20201208
  Transmission Date: 20210113
  Serious: Yes (Hospitalization, Other)
  Sender: FDA-Public Use
  Company Number: GB-MYLANLABS-2020M1075860

PATIENT
  Age: 46 Year
  Sex: Female

DRUGS (3)
  1. CLOZARIL [Suspect]
     Active Substance: CLOZAPINE
     Indication: SCHIZOAFFECTIVE DISORDER
     Dosage: SINGLE DOSE OF 12.5MG
     Dates: start: 20200829, end: 20200903
  2. CLOZARIL [Suspect]
     Active Substance: CLOZAPINE
     Indication: SCHIZOPHRENIA
     Dosage: UNK
     Route: 048
     Dates: start: 20101026, end: 20200826
  3. CLOZARIL [Suspect]
     Active Substance: CLOZAPINE
     Dosage: UNK

REACTIONS (16)
  - Oesophagitis [Recovered/Resolved]
  - Weight decreased [Unknown]
  - Eosinophil count decreased [Recovered/Resolved]
  - Iron deficiency anaemia [Recovering/Resolving]
  - Off label use [Unknown]
  - Neutropenia [Recovered/Resolved]
  - Malaise [Unknown]
  - White blood cell count decreased [Recovered/Resolved]
  - Schizophrenia [Unknown]
  - Microcytic anaemia [Unknown]
  - Pulmonary embolism [Unknown]
  - Hypotension [Unknown]
  - Orthostatic hypotension [Unknown]
  - Anaemia [Recovered/Resolved]
  - Upper gastrointestinal haemorrhage [Unknown]
  - Neoplasm malignant [Unknown]

NARRATIVE: CASE EVENT DATE: 2020
